FAERS Safety Report 23634399 (Version 1)
Quarter: 2024Q1

REPORT INFORMATION
  Report Type: Spontaneous
  Country: US (occurrence: US)
  Receive Date: 20240314
  Receipt Date: 20240314
  Transmission Date: 20240409
  Serious: Yes (Other)
  Sender: FDA-Public Use
  Company Number: US-JNJFOC-20240317281

PATIENT

DRUGS (2)
  1. REMICADE [Suspect]
     Active Substance: INFLIXIMAB
     Indication: Product used for unknown indication
     Route: 041
  2. INFLECTRA [Suspect]
     Active Substance: INFLIXIMAB-DYYB
     Indication: Product used for unknown indication
     Dosage: PATIENT RECEIVED 200 MG DOSES ON 20NOV2023, 02DEC2023, 29DEC2023, 10FEB2024, AND 24FEB2024
     Route: 065
     Dates: start: 20231120

REACTIONS (1)
  - Haemoglobin decreased [Not Recovered/Not Resolved]
